FAERS Safety Report 7633386-5 (Version None)
Quarter: 2011Q3

REPORT INFORMATION
  Report Type: 
  Country: None (occurrence: None)
  Receive Date: 20110725
  Receipt Date: 20101202
  Transmission Date: 20111222
  Serious: No
  Sender: FDA-Public Use
  Company Number: US-BRISTOL-MYERS SQUIBB COMPANY-15419807

PATIENT
  Age: 57 Year
  Sex: Female

DRUGS (1)
  1. SPRYCEL [Suspect]
     Indication: LEUKAEMIA
     Dates: start: 20100601

REACTIONS (4)
  - SINUSITIS [None]
  - ABDOMINAL DISCOMFORT [None]
  - INFLUENZA LIKE ILLNESS [None]
  - ALOPECIA [None]
